FAERS Safety Report 4452486-4 (Version None)
Quarter: 2004Q3

REPORT INFORMATION
  Report Type: 
  Country: None (occurrence: None)
  Receive Date: 20040916
  Receipt Date: 20040907
  Transmission Date: 20050211
  Serious: Yes (Hospitalization)
  Sender: FDA-Public Use
  Company Number: 2004232195JP

PATIENT
  Age: 67 Year
  Sex: Male

DRUGS (3)
  1. CAMPTOSAR [Suspect]
     Indication: RECTAL CANCER
     Dosage: 120 MG, CYCLIC, IV DRIP
     Route: 041
     Dates: start: 20040304, end: 20040623
  2. FLUOROURACIL [Suspect]
     Indication: RECTAL CANCER
     Dates: start: 20040304
  3. ISOVORIN [Suspect]
     Indication: RECTAL CANCER
     Dosage: IV DRIP
     Route: 041
     Dates: start: 20040304

REACTIONS (2)
  - CHOKING SENSATION [None]
  - INTERSTITIAL LUNG DISEASE [None]
